FAERS Safety Report 18632744 (Version 1)
Quarter: 2020Q4

REPORT INFORMATION
  Report Type: Spontaneous
  Country: US (occurrence: US)
  Receive Date: 20201217
  Receipt Date: 20201217
  Transmission Date: 20210114
  Serious: Yes (Hospitalization)
  Sender: FDA-Public Use
  Company Number: None

PATIENT
  Sex: Female

DRUGS (24)
  1. AMIODARONE [Concomitant]
     Active Substance: AMIODARONE
  2. MYRBETRIO [Concomitant]
  3. PREGABALIN. [Concomitant]
     Active Substance: PREGABALIN
  4. PRISTIQ EXTENDED-RELEASE [Concomitant]
     Active Substance: DESVENLAFAXINE SUCCINATE
  5. PROLIA [Concomitant]
     Active Substance: DENOSUMAB
  6. SIMVASTATIN. [Concomitant]
     Active Substance: SIMVASTATIN
  7. ADVAIR HFA [Concomitant]
     Active Substance: FLUTICASONE PROPIONATE\SALMETEROL XINAFOATE
  8. TOPROL XL [Concomitant]
     Active Substance: METOPROLOL SUCCINATE
  9. ALBUTEROL. [Concomitant]
     Active Substance: ALBUTEROL
  10. LANSOPRAZOLE. [Concomitant]
     Active Substance: LANSOPRAZOLE
  11. MULTIVITAMIN ADLT 50+ [Concomitant]
  12. TIZANIDINE. [Concomitant]
     Active Substance: TIZANIDINE
  13. CALCITRIOL. [Concomitant]
     Active Substance: CALCITRIOL
  14. CALCIUM 600+D [Concomitant]
     Active Substance: CALCIUM\VITAMIN D
  15. MONTELUKAST [Concomitant]
     Active Substance: MONTELUKAST SODIUM
  16. VERZENIO [Suspect]
     Active Substance: ABEMACICLIB
     Indication: BREAST CANCER FEMALE
     Route: 048
     Dates: start: 20200714
  17. ABILIFY [Concomitant]
     Active Substance: ARIPIPRAZOLE
  18. LORAZEPAM. [Concomitant]
     Active Substance: LORAZEPAM
  19. BUPROPN HCL XL [Concomitant]
  20. ELIQUIS [Concomitant]
     Active Substance: APIXABAN
  21. KLOR-CON M20 [Concomitant]
     Active Substance: POTASSIUM CHLORIDE
  22. OPANA [Concomitant]
     Active Substance: OXYMORPHONE HYDROCHLORIDE
  23. SYNTHROID [Concomitant]
     Active Substance: LEVOTHYROXINE SODIUM
  24. XYZAL [Concomitant]
     Active Substance: LEVOCETIRIZINE DIHYDROCHLORIDE

REACTIONS (3)
  - Pleural effusion [None]
  - Pneumonia [None]
  - Urinary tract infection [None]
